FAERS Safety Report 18862050 (Version 1)
Quarter: 2021Q1

REPORT INFORMATION
  Report Type: Report from Study
  Country: MX (occurrence: MX)
  Receive Date: 20210208
  Receipt Date: 20210208
  Transmission Date: 20210420
  Serious: Yes (Other)
  Sender: FDA-Public Use
  Company Number: NVSC2021MX027492

PATIENT
  Age: 75 Year
  Sex: Female
  Weight: 65 kg

DRUGS (1)
  1. GALVUS MET [Suspect]
     Active Substance: METFORMIN HYDROCHLORIDE\VILDAGLIPTIN
     Indication: DIABETES MELLITUS
     Dosage: 1 DF, QD, STARTED 1 YEARS AGO APPROXIMATELY
     Route: 065

REACTIONS (4)
  - Gait disturbance [Unknown]
  - Fall [Unknown]
  - Hip fracture [Unknown]
  - Eye disorder [Unknown]

NARRATIVE: CASE EVENT DATE: 202005
